FAERS Safety Report 11980264 (Version 3)
Quarter: 2016Q1

REPORT INFORMATION
  Report Type: Spontaneous
  Country: US (occurrence: US)
  Receive Date: 20160129
  Receipt Date: 20160302
  Transmission Date: 20160526
  Serious: Yes (Hospitalization, Other)
  Sender: FDA-Public Use
  Company Number: US-MYLANLABS-2016M1003722

PATIENT

DRUGS (5)
  1. ACICLOVIR [Suspect]
     Active Substance: ACYCLOVIR
     Indication: VIRAL INFECTION
     Dosage: RECEIVED TOTAL 9 DOSES OVER 6 DAYS.
     Route: 042
  2. ACICLOVIR [Suspect]
     Active Substance: ACYCLOVIR
     Indication: EVIDENCE BASED TREATMENT
  3. VALACICLOVIR [Suspect]
     Active Substance: VALACYCLOVIR HYDROCHLORIDE
     Indication: HERPES ZOSTER
     Dosage: RECEIVED 2 DOSES OF 1G
     Route: 048
  4. LABETALOL [Concomitant]
     Active Substance: LABETALOL\LABETALOL HYDROCHLORIDE
     Indication: HYPERTENSION
     Route: 065
  5. ACICLOVIR [Suspect]
     Active Substance: ACYCLOVIR
     Indication: ENCEPHALITIS VIRAL

REACTIONS (2)
  - Neurotoxicity [Recovered/Resolved]
  - Status epilepticus [Recovered/Resolved]
